FAERS Safety Report 8780115 (Version 1)
Quarter: 2012Q4

REPORT INFORMATION
  Report Type: Spontaneous
  Country: US (occurrence: None)
  Receive Date: 20120904
  Receipt Date: 20120904
  Transmission Date: 20130627
  Serious: No
  Sender: FDA-Public Use
  Company Number: None

PATIENT
  Sex: Female
  Weight: 58.06 kg

DRUGS (2)
  1. TYLENOL 325 MG [Suspect]
     Indication: PAIN
     Dosage: 325 mg every 6 hrs. for about 7 to 20 days then I stop + resume 7-10 days again b/c pain returns this is very unclear. 

Taken for sev. years quite steadily as descr. in A-5

This info is always from ed despite compl. to McNeil in the USA
  2. TYLENOL 325 MG [Suspect]
     Indication: ARTHRITIS
     Dosage: 325 mg every 6 hrs. for about 7 to 20 days then I stop + resume 7-10 days again b/c pain returns this is very unclear. 

Taken for sev. years quite steadily as descr. in A-5

This info is always from ed despite compl. to McNeil in the USA

REACTIONS (4)
  - Headache [None]
  - Product label issue [None]
  - Product substitution issue [None]
  - Product quality issue [None]
